FAERS Safety Report 4567404-8 (Version None)
Quarter: 2005Q1

REPORT INFORMATION
  Report Type: 
  Country: None (occurrence: None)
  Receive Date: 20050127
  Receipt Date: 20050117
  Transmission Date: 20050727
  Serious: Yes (Hospitalization, Other)
  Sender: FDA-Public Use
  Company Number: HQWYE656117JAN05

PATIENT
  Age: 88 Year
  Sex: Female

DRUGS (12)
  1. RHINADVIL (IBUPROFEN/ PSEUDOEPHEDRINE, TABLET) [Suspect]
     Indication: PHARYNGITIS
     Dosage: 2 TABLET 3X PER 1 DAY ORAL
     Route: 048
     Dates: start: 20040313, end: 20040321
  2. RHINADVIL (IBUPROFEN/ PSEUDOEPHEDRINE, TABLET) [Suspect]
     Indication: RHINITIS
     Dosage: 2 TABLET 3X PER 1 DAY ORAL
     Route: 048
     Dates: start: 20040313, end: 20040321
  3. ZECLAR (CLARITHROMYCIN, ) [Suspect]
     Dosage: 250 MG 2X PER 1 DAY
     Dates: start: 20040313, end: 20040321
  4. PHYSIOTENS ^GIULINI^ (MOXONIDINE) [Concomitant]
  5. SECTRAL [Concomitant]
  6. CAPTEA (CAPTOPRIL/ HYDROCHLOROTHIAZIDE) [Concomitant]
  7. CAPTOPRIL [Concomitant]
  8. KARDEGIC (ACETYLSALICYLATE LYSINE) [Concomitant]
  9. SEPCIAFOLDINE (FOLIC ACID) [Concomitant]
  10. DAFLON (DIOSMIN) [Concomitant]
  11. ACETAMINOPHEN W/ PROPOXYPHENE HCL [Concomitant]
  12. VASTAREL (TRIMETAZIDINE HYDROCHLORIDE) [Concomitant]

REACTIONS (8)
  - BLOOD ALKALINE PHOSPHATASE INCREASED [None]
  - CULTURE URINE POSITIVE [None]
  - EOSINOPHILIA [None]
  - ESCHERICHIA INFECTION [None]
  - LEUKOCYTOSIS [None]
  - PYREXIA [None]
  - RED BLOOD CELL SEDIMENTATION RATE INCREASED [None]
  - TOXIC SKIN ERUPTION [None]
